FAERS Safety Report 14767270 (Version 1)
Quarter: 2018Q2

REPORT INFORMATION
  Report Type: Report from Study
  Country: US (occurrence: US)
  Receive Date: 20180417
  Receipt Date: 20180417
  Transmission Date: 20180711
  Serious: Yes (Other)
  Sender: FDA-Public Use
  Company Number: US-AMGEN-USASL2018048853

PATIENT
  Age: 72 Year
  Sex: Female

DRUGS (1)
  1. REPATHA [Suspect]
     Active Substance: EVOLOCUMAB
     Indication: TYPE IIA HYPERLIPIDAEMIA
     Dosage: 140 MG/ML, Q2WK
     Route: 065

REACTIONS (9)
  - Headache [Unknown]
  - Swelling face [Unknown]
  - Peripheral swelling [Unknown]
  - Contusion [Unknown]
  - Rhinorrhoea [Unknown]
  - Sleep disorder due to a general medical condition [Unknown]
  - Musculoskeletal stiffness [Not Recovered/Not Resolved]
  - Injection site bruising [Unknown]
  - Eye swelling [Unknown]

NARRATIVE: CASE EVENT DATE: 20180329
